FAERS Safety Report 23709671 (Version 2)
Quarter: 2024Q2

REPORT INFORMATION
  Report Type: Spontaneous
  Country: US (occurrence: US)
  Receive Date: 20240404
  Receipt Date: 20240501
  Transmission Date: 20240715
  Serious: No
  Sender: FDA-Public Use
  Company Number: US-BAUSCHBL-2024BNL004038

PATIENT
  Age: 65 Year
  Sex: Male
  Weight: 86.182 kg

DRUGS (4)
  1. OPCON-A [Suspect]
     Active Substance: NAPHAZOLINE HYDROCHLORIDE\PHENIRAMINE MALEATE
     Indication: Eye pruritus
     Dosage: AS NEEDED
     Route: 047
     Dates: start: 202312, end: 20240327
  2. OPCON-A [Suspect]
     Active Substance: NAPHAZOLINE HYDROCHLORIDE\PHENIRAMINE MALEATE
     Indication: Ocular hyperaemia
  3. ERYTHROMYCIN [Suspect]
     Active Substance: ERYTHROMYCIN
     Indication: Conjunctivitis
     Dosage: INTO EACH EYE FOUR TIMES PER DAY FOR 7 DAYS
     Route: 047
     Dates: end: 20240327
  4. TOBRAMYCIN [Suspect]
     Active Substance: TOBRAMYCIN\TOBRAMYCIN SULFATE
     Indication: Conjunctivitis
     Dosage: INTO BOTH EYES EVERY 4 HOURS FOR 5 DAYS
     Route: 047
     Dates: start: 20240325, end: 20240327

REACTIONS (5)
  - Conjunctivitis [Unknown]
  - Drug hypersensitivity [Unknown]
  - Eye infection [Recovered/Resolved]
  - Swelling [Unknown]
  - Drug ineffective [Unknown]

NARRATIVE: CASE EVENT DATE: 20231201
